FAERS Safety Report 8575638-0 (Version None)
Quarter: 2012Q3

REPORT INFORMATION
  Report Type: 
  Country: None (occurrence: None)
  Receive Date: 20120807
  Receipt Date: 20120803
  Transmission Date: 20120928
  Serious: Yes (Other)
  Sender: FDA-Public Use
  Company Number: PHHY2012FR067122

PATIENT
  Sex: Male

DRUGS (2)
  1. IMATINIB MESYLATE [Suspect]
     Dosage: UNK UKN, UNK
     Route: 065
  2. IMATINIB MESYLATE [Suspect]
     Dosage: UNK UKN, UNK
     Route: 065

REACTIONS (2)
  - HYPERTENSION [None]
  - RENAL INJURY [None]
